FAERS Safety Report 17591871 (Version 2)
Quarter: 2020Q1

REPORT INFORMATION
  Report Type: Spontaneous
  Country: CA (occurrence: CA)
  Receive Date: 20200327
  Receipt Date: 20200331
  Transmission Date: 20200409
  Serious: Yes (Hospitalization)
  Sender: FDA-Public Use
  Company Number: CA-PFIZER INC-2020126150

PATIENT
  Age: 64 Year
  Sex: Male

DRUGS (7)
  1. INFLECTRA [Concomitant]
     Active Substance: INFLIXIMAB-DYYB
     Indication: CROHN^S DISEASE
     Dosage: 10 MG/KG, UNK
     Route: 042
     Dates: start: 20200323
  2. ENGERIX-B [Concomitant]
     Active Substance: HEPATITIS B VIRUS SUBTYPE ADW2 HBSAG SURFACE PROTEIN ANTIGEN
     Dosage: 2 CC
     Route: 030
  3. NICORETTE [NICOTINE] [Concomitant]
     Dosage: UNK, AS NEEDED
     Route: 048
  4. ATORVASTATIN [ATORVASTATIN CALCIUM] [Concomitant]
     Active Substance: ATORVASTATIN CALCIUM
     Dosage: UNK
     Route: 065
  5. SOLU-MEDROL [Suspect]
     Active Substance: METHYLPREDNISOLONE SODIUM SUCCINATE
     Dosage: UNK
     Route: 042
     Dates: start: 202003
  6. NICODERM CQ [Concomitant]
     Active Substance: NICOTINE
     Dosage: 21 MG, DAILY
     Route: 062
  7. PREDNISONE. [Concomitant]
     Active Substance: PREDNISONE
     Dosage: UNK
     Route: 065

REACTIONS (7)
  - Abdominal pain [Unknown]
  - C-reactive protein increased [Unknown]
  - Weight decreased [Unknown]
  - Crohn^s disease [Unknown]
  - Diarrhoea [Unknown]
  - Immunosuppression [Unknown]
  - Rectal haemorrhage [Unknown]
